FAERS Safety Report 4976316-7 (Version None)
Quarter: 2006Q2

REPORT INFORMATION
  Report Type: 
  Country: None (occurrence: None)
  Receive Date: 20060412
  Receipt Date: 20060331
  Transmission Date: 20061013
  Serious: Yes (Hospitalization, Other)
  Sender: FDA-Public Use
  Company Number: 2006043599

PATIENT
  Age: 84 Year
  Sex: Female

DRUGS (9)
  1. LYRICA [Suspect]
     Indication: DIABETIC NEUROPATHY
     Dosage: 150 MG (75 MG, 2 IN 1 D), ORAL
     Route: 048
     Dates: end: 20060206
  2. LYRICA [Suspect]
     Indication: PARAESTHESIA
     Dosage: 150 MG (75 MG, 2 IN 1 D), ORAL
     Route: 048
     Dates: end: 20060206
  3. ASPIRIN [Concomitant]
  4. ALL OTHER THERAPEUTIC PRODUCTS (ALL OTHER THERAPEUTIC PRODUCTS) [Concomitant]
  5. TOREM (TORASEMIDE) [Concomitant]
  6. ATORVASTATIN CALCIUM [Concomitant]
  7. TAMOXIFEN CITRATE [Concomitant]
  8. NITROGLYCERIN [Concomitant]
  9. ACETAMINOPHEN [Concomitant]

REACTIONS (3)
  - CONFUSIONAL STATE [None]
  - SYNCOPE [None]
  - VERTIGO [None]
